FAERS Safety Report 5138635-3 (Version None)
Quarter: 2006Q4

REPORT INFORMATION
  Report Type: 
  Country: None (occurrence: None)
  Receive Date: 20061030
  Receipt Date: 20061023
  Transmission Date: 20070319
  Serious: Yes (Other)
  Sender: FDA-Public Use
  Company Number: JP-JPN-A200604488

PATIENT
  Age: 46 Year
  Sex: Male

DRUGS (9)
  1. VALTREX [Suspect]
     Indication: HERPES ZOSTER
     Dosage: 500MG TWICE PER DAY
     Route: 048
     Dates: start: 20061017, end: 20061019
  2. LANSOPRAZOLE [Concomitant]
     Route: 048
  3. CEROCRAL [Concomitant]
     Route: 048
  4. RENAGEL [Concomitant]
     Route: 048
  5. MEXITIL [Concomitant]
     Route: 065
  6. DIOVAN [Concomitant]
     Route: 048
  7. PURSENNID [Concomitant]
     Route: 048
  8. LENDORMIN [Concomitant]
     Route: 048
  9. ARGAMATE [Concomitant]
     Route: 048

REACTIONS (2)
  - HALLUCINATION, VISUAL [None]
  - OVERDOSE [None]
